FAERS Safety Report 25562485 (Version 1)
Quarter: 2025Q3

REPORT INFORMATION
  Report Type: Spontaneous
  Country: EU (occurrence: EU)
  Receive Date: 20250716
  Receipt Date: 20250716
  Transmission Date: 20251020
  Serious: Yes (Other)
  Sender: ALEXION PHARMACEUTICALS
  Company Number: EU-ASTRAZENECA-202507GLO008315RO

PATIENT
  Age: 62 Year
  Sex: Female

DRUGS (1)
  1. DURVALUMAB [Suspect]
     Active Substance: DURVALUMAB
     Indication: Small cell lung cancer
     Route: 065

REACTIONS (4)
  - Hypothyroidism [Recovered/Resolved]
  - Type 2 diabetes mellitus [Recovered/Resolved]
  - Paraneoplastic syndrome [Recovered/Resolved]
  - Superficial inflammatory dermatosis [Recovered/Resolved]

NARRATIVE: CASE EVENT DATE: 20230201
